FAERS Safety Report 21768453 (Version 1)
Quarter: 2022Q4

REPORT INFORMATION
  Report Type: Spontaneous
  Country: US (occurrence: None)
  Receive Date: 20221221
  Receipt Date: 20221221
  Transmission Date: 20230113
  Serious: No
  Sender: FDA-Public Use
  Company Number: None

PATIENT
  Age: 40 Year
  Sex: Female

DRUGS (11)
  1. KEVZARA [Suspect]
     Active Substance: SARILUMAB
     Indication: Rheumatoid arthritis
     Dosage: FREQUENCY : EVERY OTHER WEEK;?
     Route: 058
     Dates: start: 20221221
  2. ALPRAZOLAM [Concomitant]
  3. BACLOFEN [Concomitant]
  4. BUSPIRONE [Concomitant]
  5. FAMOTIDINE [Concomitant]
     Active Substance: FAMOTIDINE
  6. NORCO [Concomitant]
  7. LINZEZSS [Concomitant]
  8. PANTOPRAZOLE [Concomitant]
  9. OZEMPIC [Concomitant]
     Active Substance: SEMAGLUTIDE
  10. VICTOZA [Concomitant]
     Active Substance: LIRAGLUTIDE
  11. ROSUVASTATIN [Concomitant]
     Active Substance: ROSUVASTATIN

REACTIONS (1)
  - Needle issue [None]

NARRATIVE: CASE EVENT DATE: 20221221
